FAERS Safety Report 4320470-7 (Version None)
Quarter: 2004Q1

REPORT INFORMATION
  Report Type: 
  Country: None (occurrence: None)
  Receive Date: 20040316
  Receipt Date: 20031029
  Transmission Date: 20041129
  Serious: Yes (Congenital Anomaly)
  Sender: FDA-Public Use
  Company Number: 314033

PATIENT
  Sex: Male
  Weight: 3.2 kg

DRUGS (4)
  1. ACCUTANE [Suspect]
     Indication: ACNE CYSTIC
     Dosage: 40 MG DAILY ORAL
     Route: 048
     Dates: start: 19990415, end: 20010508
  2. , [Concomitant]
  3. ALESSE (ETHINYL ESTRADIOL/LEVONORGESTREL) [Concomitant]
  4. CONTRACEPTIVE PILL (ORAL CONTRACEPTIVE NOS) [Concomitant]

REACTIONS (14)
  - COGNITIVE DISORDER [None]
  - COMPLICATIONS OF MATERNAL EXPOSURE TO THERAPEUTIC DRUGS [None]
  - CONGENITAL ANOMALY OF INNER EAR [None]
  - CONGENITAL TORTICOLLIS [None]
  - CONSTIPATION [None]
  - DEVELOPMENTAL DELAY [None]
  - DRUG EXPOSURE DURING PREGNANCY [None]
  - DYSPRAXIA [None]
  - GAIT DISTURBANCE [None]
  - HYPOTHALAMO-PITUITARY DISORDERS [None]
  - MULTIPLE CONGENITAL ABNORMALITIES [None]
  - MUSCLE DISORDER [None]
  - NERVOUS SYSTEM DISORDER [None]
  - VISUAL ACUITY REDUCED [None]
